FAERS Safety Report 14321841 (Version 2)
Quarter: 2018Q1

REPORT INFORMATION
  Report Type: Spontaneous
  Country: IT (occurrence: IT)
  Receive Date: 20171224
  Receipt Date: 20180104
  Transmission Date: 20180509
  Serious: Yes (Hospitalization)
  Sender: FDA-Public Use
  Company Number: IT-ROCHE-2046086

PATIENT
  Age: 51 Year
  Sex: Male

DRUGS (1)
  1. ACTILYSE [Suspect]
     Active Substance: ALTEPLASE
     Indication: THROMBOLYSIS
     Dosage: WITH 10% ADMINISTRATED IN 1 MINUTE AND THE REMAINING 90% OVER THE NEXT HOUR
     Route: 065

REACTIONS (1)
  - Aortic dissection [Unknown]
